FAERS Safety Report 14853395 (Version 1)
Quarter: 2018Q2

REPORT INFORMATION
  Report Type: Spontaneous
  Country: TW (occurrence: TW)
  Receive Date: 20180507
  Receipt Date: 20180507
  Transmission Date: 20180711
  Serious: Yes (Life-Threatening, Hospitalization)
  Sender: FDA-Public Use
  Company Number: TW-BAYER-2018-081990

PATIENT
  Age: 20 Month
  Sex: Female

DRUGS (1)
  1. ACETYLSALICYLIC ACID({=100 MG) [Suspect]
     Active Substance: ASPIRIN
     Indication: KAWASAKI^S DISEASE
     Route: 048

REACTIONS (9)
  - Coma [Recovered/Resolved]
  - Haemofiltration [Recovered/Resolved]
  - Toxicity to various agents [Recovered/Resolved]
  - Off label use [None]
  - Product use in unapproved indication [None]
  - Intracranial pressure increased [Recovered/Resolved]
  - Reye^s syndrome [Recovered/Resolved]
  - Metabolic abnormality management [Recovered/Resolved]
  - Brain oedema [Recovered/Resolved]
